FAERS Safety Report 6150227-6 (Version None)
Quarter: 2009Q2

REPORT INFORMATION
  Report Type: 
  Country: None (occurrence: None)
  Receive Date: 20090407
  Receipt Date: 20090327
  Transmission Date: 20091009
  Serious: Yes (Hospitalization)
  Sender: FDA-Public Use
  Company Number: WAES 0806USA08530

PATIENT
  Age: 50 Year
  Sex: Female

DRUGS (14)
  1. CAP VORINOSTAT [Suspect]
     Indication: NON-SMALL CELL LUNG CANCER
     Dosage: 400 MG/DAILY PO
     Route: 048
     Dates: start: 20080611, end: 20080622
  2. CAP VORINOSTAT [Suspect]
     Indication: NON-SMALL CELL LUNG CANCER
     Dosage: 400 MG/DAILY PO
     Route: 048
     Dates: start: 20080708, end: 20080720
  3. CARBOPLATIN [Suspect]
     Indication: NON-SMALL CELL LUNG CANCER
     Dosage: 824 MG/1X IV, 830 MG/1X IV
     Route: 042
     Dates: start: 20080616, end: 20080616
  4. CARBOPLATIN [Suspect]
     Indication: NON-SMALL CELL LUNG CANCER
     Dosage: 824 MG/1X IV, 830 MG/1X IV
     Route: 042
     Dates: start: 20080708, end: 20080708
  5. PACLITAXEL [Suspect]
     Indication: NON-SMALL CELL LUNG CANCER
     Dosage: 318 MG/1X IV, 308 MG/1X IV
     Route: 042
     Dates: start: 20080616, end: 20080616
  6. PACLITAXEL [Suspect]
     Indication: NON-SMALL CELL LUNG CANCER
     Dosage: 318 MG/1X IV, 308 MG/1X IV
     Route: 042
     Dates: start: 20080708, end: 20080708
  7. ATIVAN [Concomitant]
  8. DECMAX [Concomitant]
  9. EFCORLIN [Concomitant]
  10. GRANISET [Concomitant]
  11. OMEZ [Concomitant]
  12. PHENERGAN HCL [Concomitant]
  13. RANTAC [Concomitant]
  14. DEXAMETHASONE TAB [Concomitant]

REACTIONS (17)
  - ABDOMINAL PAIN UPPER [None]
  - ANOREXIA [None]
  - BACK PAIN [None]
  - CHEST PAIN [None]
  - CONSTIPATION [None]
  - COUGH [None]
  - DISEASE PROGRESSION [None]
  - DYSPNOEA [None]
  - FATIGUE [None]
  - FEBRILE NEUTROPENIA [None]
  - LETHARGY [None]
  - MYOCARDIAL ISCHAEMIA [None]
  - PAIN [None]
  - PLEURAL EFFUSION [None]
  - PRODUCTIVE COUGH [None]
  - RESPIRATORY RATE INCREASED [None]
  - WHEEZING [None]
